FAERS Safety Report 10457091 (Version 2)
Quarter: 2014Q3

REPORT INFORMATION
  Report Type: Spontaneous
  Country: BR (occurrence: BR)
  Receive Date: 20140916
  Receipt Date: 20140916
  Transmission Date: 20150326
  Serious: Yes (Other)
  Sender: FDA-Public Use
  Company Number: BR-SA-2013SA135892

PATIENT
  Sex: Female
  Weight: 60 kg

DRUGS (3)
  1. CLEXANE [Suspect]
     Active Substance: ENOXAPARIN SODIUM
     Indication: THROMBOSIS PROPHYLAXIS
     Dosage: REPORTED AS 1 SYRINGE OF CLEXANE
     Route: 058
     Dates: start: 201311, end: 201407
  2. FOLIC ACID. [Suspect]
     Active Substance: FOLIC ACID
     Indication: PROPHYLAXIS
     Route: 048
     Dates: start: 201310
  3. UTROGESTAN [Suspect]
     Active Substance: PROGESTERONE
     Indication: PROPHYLAXIS
     Route: 067
     Dates: start: 201311

REACTIONS (2)
  - Caesarean section [Unknown]
  - Exposure during pregnancy [Unknown]

NARRATIVE: CASE EVENT DATE: 20140619
